FAERS Safety Report 6234532-0 (Version None)
Quarter: 2009Q2

REPORT INFORMATION
  Report Type: 
  Country: None (occurrence: None)
  Receive Date: 20090618
  Receipt Date: 20090320
  Transmission Date: 20091009
  Serious: No
  Sender: FDA-Public Use
  Company Number: US-BRISTOL-MYERS SQUIBB COMPANY-14554950

PATIENT
  Age: 74 Year
  Sex: Male
  Weight: 67 kg

DRUGS (5)
  1. SINEMET [Suspect]
     Indication: PARKINSON'S DISEASE
     Dosage: DOSAGE FORM = TABS 2 TABS EVERY 4 HOURS FROM 10AM UNTIL 10PM
  2. FLOMAX [Concomitant]
  3. AVODART [Concomitant]
  4. LOVAZA [Concomitant]
  5. VITAMIN D3 [Concomitant]

REACTIONS (4)
  - BACK PAIN [None]
  - DRY MOUTH [None]
  - TOOTH EXTRACTION [None]
  - VISION BLURRED [None]
